FAERS Safety Report 19032322 (Version 2)
Quarter: 2021Q2

REPORT INFORMATION
  Report Type: Report from Study
  Country: US (occurrence: US)
  Receive Date: 20210319
  Receipt Date: 20210430
  Transmission Date: 20210717
  Serious: Yes (Hospitalization)
  Sender: FDA-Public Use
  Company Number: US-ADAMAS PHARMA, LLC-2021ADA00478

PATIENT
  Age: 73 Year
  Sex: Male

DRUGS (27)
  1. PRAMIPEXOLE. [Concomitant]
     Active Substance: PRAMIPEXOLE
     Dosage: 0.5 MG NIGHTLY AS NEEDED (IF SCHEDULED DOSE IS INEFFECTIVE)
  2. LISINOPRIL. [Concomitant]
     Active Substance: LISINOPRIL
     Dosage: 5 MG, 1X/DAY NIGHTLY
     Route: 048
  3. PRAMIPEXOLE. [Concomitant]
     Active Substance: PRAMIPEXOLE
     Dosage: 0.5 MG, 1X/DAY, NIGHTLY
  4. MELATONIN [Concomitant]
     Active Substance: MELATONIN
     Dosage: 12 MG, 1X/DAY NIGHTLY
  5. LEVOTHYROXINE. [Concomitant]
     Active Substance: LEVOTHYROXINE
     Dosage: 25 ?G, 1X/DAY AT 6:30 AM
  6. COENZYME Q10 [Concomitant]
     Active Substance: DIETARY SUPPLEMENT\UBIDECARENONE
     Dosage: 200 MG, 2X/DAY (10 AM AND 2 PM)
     Route: 048
  7. MAGNESIUM [Concomitant]
     Active Substance: MAGNESIUM
     Dosage: 250 MG, 1X/DAY NIGHTLY
     Route: 048
  8. TRAZODONE [Concomitant]
     Active Substance: TRAZODONE HYDROCHLORIDE
     Dosage: 25 MG, 1X/DAY, NIGHTLY
  9. MIRTAZAPINE. [Concomitant]
     Active Substance: MIRTAZAPINE
     Dosage: 7.5 MG, 1X/DAY NIGHTLY
     Route: 048
  10. GOCOVRI [Suspect]
     Active Substance: AMANTADINE
     Indication: FREEZING PHENOMENON
     Dosage: 137 MG,1X/DAY EVERY NIGHT AT BEDTIME
     Route: 048
     Dates: start: 20210301, end: 20210302
  11. VITAMIN B12 [Concomitant]
     Active Substance: CYANOCOBALAMIN
     Dosage: 100 ?G, 1X/DAY AT 2 PM
  12. TURMERIC [Concomitant]
     Active Substance: HERBALS\TURMERIC
  13. MULTI?DAY ORAL [Concomitant]
     Dosage: 1 TABLETS, 1X/DAY, AT 2 PM
  14. GOCOVRI [Suspect]
     Active Substance: AMANTADINE
     Indication: MUSCLE RIGIDITY
     Dosage: 274 MG, 1X/DAY EVERY NIGHT AT BEDTIME
     Route: 048
     Dates: start: 20210303
  15. CARBIDOPA/ LEVODOPA [Concomitant]
     Active Substance: CARBIDOPA\LEVODOPA
     Dosage: 1 TABLETS, 4X/DAY (10 AM, 2 PM, 6 PM, 10 PM)
  16. AZILECT [Concomitant]
     Active Substance: RASAGILINE MESYLATE
     Dosage: 1 MG, 1X/DAY, AT 2 PM
  17. FINASTERIDE. [Concomitant]
     Active Substance: FINASTERIDE
  18. BIOTIN [Concomitant]
     Active Substance: BIOTIN
     Dosage: 5 MG, 1X/DAY AT 10 AM
     Route: 048
  19. CENTRUM [Concomitant]
     Active Substance: VITAMINS
  20. VITAMIN D3 [Concomitant]
     Active Substance: CHOLECALCIFEROL
     Dosage: 2000 U, 1X/DAY AT 10 AM
  21. RECLAST [Concomitant]
     Active Substance: ZOLEDRONIC ACID
     Dosage: UNK, 1X/YEAR
  22. ATORVASTATIN [Concomitant]
     Active Substance: ATORVASTATIN
     Dosage: 40 MG, 1X/DAY AT 6 PM
     Route: 048
  23. GABAPENTIN. [Concomitant]
     Active Substance: GABAPENTIN
     Dosage: 600 MG, 1X/DAY NIGHTLY
     Route: 048
  24. ASPIRIN. [Concomitant]
     Active Substance: ASPIRIN
     Dosage: 81 MG, 1X/DAY NIGHTLY
     Route: 048
  25. GOCOVRI [Suspect]
     Active Substance: AMANTADINE
     Indication: THERAPEUTIC RESPONSE SHORTENED
     Dosage: 274 MG, 1X/DAY EVERY NIGHT AT BEDTIME
     Route: 048
     Dates: start: 20191106, end: 20210228
  26. CARBIDOPA/ LEVODOPA CR [Concomitant]
     Dosage: 1 TABLETS, 4X/DAY (10 AM, 2 PM, 6 PM, 10 PM)
  27. TRAZODONE [Concomitant]
     Active Substance: TRAZODONE HYDROCHLORIDE
     Dosage: 25 MG, NIGHTLY (IF FIRST TABLET IS INEFFECTIVE)

REACTIONS (9)
  - Spinal compression fracture [Not Recovered/Not Resolved]
  - Product availability issue [Recovered/Resolved]
  - Dental care [Unknown]
  - Constipation [Unknown]
  - Presyncope [Recovered/Resolved]
  - Intentional underdose [Recovered/Resolved]
  - Colitis ischaemic [Recovering/Resolving]
  - Fall [Recovered/Resolved]
  - Hallucination [Not Recovered/Not Resolved]

NARRATIVE: CASE EVENT DATE: 202012
